FAERS Safety Report 4423902-9 (Version None)
Quarter: 2004Q3

REPORT INFORMATION
  Report Type: 
  Country: None (occurrence: None)
  Receive Date: 20040715
  Receipt Date: 30040130
  Transmission Date: 20050211
  Serious: Yes (Hospitalization)
  Sender: FDA-Public Use
  Company Number: 2003186932US

PATIENT
  Age: 65 Year
  Sex: Male
  Weight: 82.5 kg

DRUGS (2)
  1. CELEBREX [Suspect]
     Indication: ARTHRITIS
     Dosage: 200 MG, QD, ORAL
     Route: 048
     Dates: start: 20000406, end: 20031112
  2. IV FLUIDS [Concomitant]

REACTIONS (1)
  - CARDIAC FAILURE CONGESTIVE [None]
